FAERS Safety Report 18431315 (Version 1)
Quarter: 2020Q4

REPORT INFORMATION
  Report Type: Spontaneous
  Country: US (occurrence: US)
  Receive Date: 20201027
  Receipt Date: 20201027
  Transmission Date: 20210114
  Serious: Yes (Other)
  Sender: FDA-Public Use
  Company Number: US-UCBSA-2020041665

PATIENT
  Sex: Male

DRUGS (6)
  1. OTEZLA [Concomitant]
     Active Substance: APREMILAST
  2. REMICADE [Concomitant]
     Active Substance: INFLIXIMAB
  3. HUMIRA [Concomitant]
     Active Substance: ADALIMUMAB
  4. CIMZIA [Suspect]
     Active Substance: CERTOLIZUMAB PEGOL
     Indication: PSORIATIC ARTHROPATHY
     Dosage: UNK
  5. ENBREL [Concomitant]
     Active Substance: ETANERCEPT
  6. XELJANZ [Concomitant]
     Active Substance: TOFACITINIB CITRATE

REACTIONS (3)
  - Skin plaque [Unknown]
  - Alopecia [Unknown]
  - Therapeutic response decreased [Unknown]
